FAERS Safety Report 5636594-8 (Version None)
Quarter: 2008Q1

REPORT INFORMATION
  Report Type: 
  Country: None (occurrence: None)
  Receive Date: 20080225
  Receipt Date: 20080225
  Transmission Date: 20080703
  Serious: Yes (Hospitalization)
  Sender: FDA-Public Use
  Company Number: PHEH1996US10332

PATIENT
  Age: 47 Year
  Sex: Female
  Weight: 55.842 kg

DRUGS (9)
  1. SDZ HTF 919  VS. PLACEBO [Suspect]
     Indication: IRRITABLE BOWEL SYNDROME
     Route: 048
     Dates: start: 19950321
  2. CEPHALEXIN [Concomitant]
     Indication: INFECTION
  3. ANCEF [Concomitant]
     Indication: INFECTION
  4. PHENERGAN [Concomitant]
     Indication: NAUSEA
  5. ACETAMINOPHEN [Concomitant]
     Indication: PAIN
  6. NEOSTIGMINE (NEOSTIGMINE) [Concomitant]
     Indication: LOCAL ANAESTHESIA
  7. FENTANYL [Concomitant]
     Indication: LOCAL ANAESTHESIA
  8. VERSED [Concomitant]
     Indication: LOCAL ANAESTHESIA
  9. FORANE [Concomitant]
     Indication: LOCAL ANAESTHESIA

REACTIONS (3)
  - NAUSEA [None]
  - SINUSITIS [None]
  - SURGERY [None]
